FAERS Safety Report 5592024-6 (Version None)
Quarter: 2008Q1

REPORT INFORMATION
  Report Type: 
  Country: None (occurrence: None)
  Receive Date: 20080115
  Receipt Date: 20061220
  Transmission Date: 20080703
  Serious: No
  Sender: FDA-Public Use
  Company Number: US-ABBOTT-06P-163-0406400-00

PATIENT
  Age: 67 Year
  Sex: Male
  Weight: 58.112 kg

DRUGS (1)
  1. ADVICOR [Suspect]
     Indication: BLOOD CHOLESTEROL INCREASED
     Route: 048
     Dates: start: 20061106, end: 20061101

REACTIONS (3)
  - BLISTER [None]
  - DIZZINESS [None]
  - PALPITATIONS [None]
